APPROVED DRUG PRODUCT: MONTELUKAST SODIUM
Active Ingredient: MONTELUKAST SODIUM
Strength: EQ 10MG BASE
Dosage Form/Route: TABLET;ORAL
Application: A206112 | Product #001
Applicant: L PERRIGO CO
Approved: Apr 26, 2017 | RLD: No | RS: No | Type: DISCN